FAERS Safety Report 13176265 (Version 1)
Quarter: 2017Q1

REPORT INFORMATION
  Report Type: Spontaneous
  Country: US (occurrence: US)
  Receive Date: 20170201
  Receipt Date: 20170201
  Transmission Date: 20170428
  Serious: Yes (Hospitalization)
  Sender: FDA-Public Use
  Company Number: GXBR2017US000591

PATIENT
  Age: 10 Year
  Sex: Female
  Weight: 47.17 kg

DRUGS (8)
  1. DARAPRIM [Suspect]
     Active Substance: PYRIMETHAMINE
     Dosage: 50 MG, QD
     Route: 048
     Dates: start: 20161229
  2. LEUCOVORIN. [Suspect]
     Active Substance: LEUCOVORIN
     Indication: PRODUCT USED FOR UNKNOWN INDICATION
     Dosage: 3 TABLETS QID
     Route: 048
     Dates: end: 20161206
  3. LEUCOVORIN. [Suspect]
     Active Substance: LEUCOVORIN
     Dosage: 1 TABLET QD
     Route: 048
     Dates: start: 20161229
  4. LEUCOVORIN. [Suspect]
     Active Substance: LEUCOVORIN
     Dosage: 1 TABLET QID
     Route: 048
     Dates: start: 20161215, end: 20161227
  5. DARAPRIM [Suspect]
     Active Substance: PYRIMETHAMINE
     Indication: EYE INFECTION TOXOPLASMAL
     Dosage: 50 MG, QD
     Route: 048
     Dates: start: 20161118, end: 20161206
  6. DARAPRIM [Suspect]
     Active Substance: PYRIMETHAMINE
     Dosage: 50 MG, QD
     Route: 048
     Dates: start: 20161215, end: 20161227
  7. SULFADIAZINE TABLETS, USP [Suspect]
     Active Substance: SULFADIAZINE
     Indication: PRODUCT USED FOR UNKNOWN INDICATION
     Dosage: UNK DF, UNK
     Route: 065
     Dates: end: 20161206
  8. SULFADIAZINE TABLETS, USP [Suspect]
     Active Substance: SULFADIAZINE
     Dosage: UNK
     Route: 065
     Dates: start: 20161215, end: 20161227

REACTIONS (7)
  - Alanine aminotransferase increased [Unknown]
  - Decreased appetite [Recovered/Resolved]
  - Vomiting [Recovered/Resolved]
  - Nausea [Recovered/Resolved]
  - Abdominal pain upper [Recovered/Resolved]
  - Dehydration [Recovered/Resolved]
  - Blood creatinine increased [Recovered/Resolved]

NARRATIVE: CASE EVENT DATE: 20161205
